FAERS Safety Report 23030210 (Version 2)
Quarter: 2025Q3

REPORT INFORMATION
  Report Type: Spontaneous
  Country: CA (occurrence: CA)
  Receive Date: 20231005
  Receipt Date: 20250801
  Transmission Date: 20251021
  Serious: Yes (Other)
  Sender: NOVO NORDISK
  Company Number: CA-NOVOPROD-1122183

PATIENT
  Sex: Female

DRUGS (1)
  1. VAGIFEM [Suspect]
     Active Substance: ESTRADIOL
     Indication: Menopause
     Route: 067
     Dates: start: 202206

REACTIONS (4)
  - Loss of consciousness [Recovered/Resolved]
  - Colitis [Unknown]
  - Food poisoning [Unknown]
  - Endometrial thickening [Not Recovered/Not Resolved]
